FAERS Safety Report 11704697 (Version 1)
Quarter: 2015Q4

REPORT INFORMATION
  Report Type: Spontaneous
  Country: AU (occurrence: AU)
  Receive Date: 20151106
  Receipt Date: 20151106
  Transmission Date: 20160304
  Serious: Yes (Hospitalization)
  Sender: FDA-Public Use
  Company Number: AU-AMGEN-AUSSP2015082265

PATIENT
  Age: 31 Year
  Sex: Female

DRUGS (1)
  1. ENBREL [Suspect]
     Active Substance: ETANERCEPT
     Indication: ANKYLOSING SPONDYLITIS
     Dosage: 50 MG, WEEKLY
     Route: 065
     Dates: start: 201504

REACTIONS (5)
  - Menorrhagia [Not Recovered/Not Resolved]
  - Sinus headache [Not Recovered/Not Resolved]
  - Eye pruritus [Not Recovered/Not Resolved]
  - Throat irritation [Unknown]
  - Formication [Not Recovered/Not Resolved]

NARRATIVE: CASE EVENT DATE: 2015
